FAERS Safety Report 21238688 (Version 1)
Quarter: 2022Q3

REPORT INFORMATION
  Report Type: Spontaneous
  Country: UY (occurrence: UY)
  Receive Date: 20220822
  Receipt Date: 20220822
  Transmission Date: 20221027
  Serious: Yes (Death, Other)
  Sender: FDA-Public Use
  Company Number: UY-AMGEN-URYSP2022141001

PATIENT

DRUGS (18)
  1. FILGRASTIM [Suspect]
     Active Substance: FILGRASTIM
     Indication: Neutropenia
     Dosage: 10 MICROGRAM/KILOGRAM, QD (4 DAYS)
     Route: 065
  2. ETOPOSIDE [Concomitant]
     Active Substance: ETOPOSIDE
     Dosage: 60 MILLIGRAM/KILOGRAM, QD (DAY 4)
  3. BUSULFAN [Concomitant]
     Active Substance: BUSULFAN
     Dosage: UNK (EVERY 6 HOURS FOR 4 CONSECUTIVE DAYS)
     Route: 042
  4. CYCLOPHOSPHAMIDE [Concomitant]
     Active Substance: CYCLOPHOSPHAMIDE
     Indication: Prophylaxis
     Dosage: 50 MILLIGRAM/KILOGRAM, QD (FOR 2 CONSECUTIVE DAYS)
  5. CYCLOPHOSPHAMIDE [Concomitant]
     Active Substance: CYCLOPHOSPHAMIDE
     Dosage: UNK, 3 HOURS ONCE A DAY FOR 4 DAYS
     Route: 042
  6. FLUDARABINE [Concomitant]
     Active Substance: FLUDARABINE PHOSPHATE
     Dosage: 30 MILLIGRAM/SQ. METER (FOR 5 DAYS)
     Route: 042
  7. MELPHALAN [Concomitant]
     Active Substance: MELPHALAN
     Dosage: 140 MILLIGRAM/KILOGRAM (ON DAY 2)
  8. LEVETIRACETAM [Concomitant]
     Active Substance: LEVETIRACETAM
     Indication: Seizure prophylaxis
  9. PHENYTOIN [Concomitant]
     Active Substance: PHENYTOIN
     Indication: Seizure prophylaxis
  10. MESNA [Concomitant]
     Active Substance: MESNA
  11. CYCLOSPORINE [Concomitant]
     Active Substance: CYCLOSPORINE
     Dosage: 1.5 MILLIGRAM/KILOGRAM, EVERY 12 HOURS
     Route: 042
  12. MYCOPHENOLATE MOFETIL [Concomitant]
     Active Substance: MYCOPHENOLATE MOFETIL
     Dosage: 15 MILLIGRAM/KILOGRAM, TID (FROM DAY +5)
     Route: 048
  13. FLUCONAZOLE [Concomitant]
     Active Substance: FLUCONAZOLE
  14. ACYCLOVIR [Concomitant]
     Active Substance: ACYCLOVIR
  15. SULFAMETHOXAZOLE\TRIMETHOPRIM [Concomitant]
     Active Substance: SULFAMETHOXAZOLE\TRIMETHOPRIM
  16. GANCICLOVIR [Concomitant]
     Active Substance: GANCICLOVIR
  17. IMMUNE GLOBULIN NOS [Concomitant]
     Active Substance: IMMUNE GLOBULIN NOS
     Route: 042
  18. URSODIOL [Concomitant]
     Active Substance: URSODIOL
     Dosage: 20 MILLIGRAM/KILOGRAM, QD

REACTIONS (27)
  - Venoocclusive liver disease [Fatal]
  - Cytomegalovirus infection [Fatal]
  - Bacterial sepsis [Fatal]
  - Fusarium infection [Fatal]
  - Pneumococcal sepsis [Fatal]
  - Cytokine release syndrome [Fatal]
  - Organ failure [Fatal]
  - Acute myeloid leukaemia [Fatal]
  - Acute lymphocytic leukaemia [Fatal]
  - Cytomegalovirus infection reactivation [Fatal]
  - Death [Fatal]
  - Toxicity to various agents [Fatal]
  - Graft complication [Fatal]
  - Post transplant lymphoproliferative disorder [Fatal]
  - Obliterative bronchiolitis [Unknown]
  - Chronic graft versus host disease [Unknown]
  - Non-Hodgkin^s lymphoma [Unknown]
  - BK virus infection [Unknown]
  - Clostridium difficile infection [Unknown]
  - Stenotrophomonas infection [Unknown]
  - Pseudomonas infection [Unknown]
  - Enterococcal infection [Unknown]
  - Candida infection [Unknown]
  - Pneumonia cytomegaloviral [Unknown]
  - Encephalitis [Unknown]
  - Transplant failure [Unknown]
  - Viral diarrhoea [Unknown]
